FAERS Safety Report 5643751-3 (Version None)
Quarter: 2008Q1

REPORT INFORMATION
  Report Type: 
  Country: None (occurrence: None)
  Receive Date: 20080131
  Receipt Date: 20071218
  Transmission Date: 20080703
  Serious: Yes (Hospitalization)
  Sender: FDA-Public Use
  Company Number: 163-21880-07100960

PATIENT
  Age: 83 Year
  Sex: Female

DRUGS (19)
  1. REVLIMID [Suspect]
     Indication: MULTIPLE MYELOMA
     Dosage: 5 MG, 1 IN 1 D, ORAL ; 5 - 10 MG, DAILY, ORAL
     Route: 048
     Dates: start: 20070101, end: 20070401
  2. REVLIMID [Suspect]
     Indication: MULTIPLE MYELOMA
     Dosage: 5 MG, 1 IN 1 D, ORAL ; 5 - 10 MG, DAILY, ORAL
     Route: 048
     Dates: start: 20070620, end: 20070901
  3. DEXAMETHASONE TAB [Concomitant]
  4. CLONIDINE [Concomitant]
  5. DILTIAZEM [Concomitant]
  6. TOPROL-XL [Concomitant]
  7. FUROSEMIDE [Concomitant]
  8. GLIPIZIDE [Concomitant]
  9. COUMADIN [Concomitant]
  10. ALPHAGAN (BRIMONIDINE TARTRATE) (DROPS) [Concomitant]
  11. SENNA (SENNA) [Concomitant]
  12. COLACE (DOCUSATE SODIUM) [Concomitant]
  13. MAGNESIUM OXIDE (MAGNESIUM OXIDE) [Concomitant]
  14. TRAVATAN (TRAVOPROST) (DROPS) [Concomitant]
  15. OMEPRAZOLE [Concomitant]
  16. ZOLPIDEM [Concomitant]
  17. GUAIFENESIN WITH CODEINE (CHERACOL /USA/) [Concomitant]
  18. LACTULOSE [Concomitant]
  19. LAXIS (FUROSEMIDE) [Concomitant]

REACTIONS (15)
  - BACK PAIN [None]
  - CARDIAC FAILURE CONGESTIVE [None]
  - CELLULITIS [None]
  - CONDITION AGGRAVATED [None]
  - CONSTIPATION [None]
  - COUGH [None]
  - DISEASE PROGRESSION [None]
  - DYSPNOEA EXERTIONAL [None]
  - FATIGUE [None]
  - HAEMOGLOBIN DECREASED [None]
  - HYPOAESTHESIA [None]
  - OEDEMA PERIPHERAL [None]
  - PARAESTHESIA [None]
  - PNEUMONIA [None]
  - POSTNASAL DRIP [None]
